FAERS Safety Report 16974488 (Version 1)
Quarter: 2019Q4

REPORT INFORMATION
  Report Type: Spontaneous
  Country: US (occurrence: US)
  Receive Date: 20190912
  Receipt Date: 20190912
  Transmission Date: 20200122
  Serious: Yes (Disabling)
  Sender: FDA-Public Use
  Company Number: None

PATIENT
  Age: 54 Year
  Sex: Female
  Weight: 55.79 kg

DRUGS (4)
  1. ASPIRIN 81MG [Concomitant]
     Active Substance: ASPIRIN
  2. ALBUTEROL INHALER [Concomitant]
     Active Substance: ALBUTEROL
  3. CIRPOFLOXACIN HCL [Suspect]
     Active Substance: CIPROFLOXACIN HYDROCHLORIDE
     Indication: URINARY TRACT INFECTION
     Dosage: ?          QUANTITY:1 DF DOSAGE FORM;?
     Route: 048
     Dates: end: 20190905
  4. MULTIVITAMIN [Concomitant]
     Active Substance: VITAMINS

REACTIONS (3)
  - Neuropathy peripheral [None]
  - Muscular weakness [None]
  - Product prescribing issue [None]

NARRATIVE: CASE EVENT DATE: 20190910
